FAERS Safety Report 7660447-7 (Version None)
Quarter: 2011Q3

REPORT INFORMATION
  Report Type: 
  Country: None (occurrence: None)
  Receive Date: 20110805
  Receipt Date: 20110722
  Transmission Date: 20111222
  Serious: Yes (Hospitalization)
  Sender: FDA-Public Use
  Company Number: SE-GENENTECH-322484

PATIENT
  Sex: Male

DRUGS (1)
  1. LUCENTIS [Suspect]
     Indication: MACULAR DEGENERATION
     Dosage: UNK UNK, UNKNOWN
     Route: 031
     Dates: start: 20101219

REACTIONS (3)
  - CARDIAC FAILURE [None]
  - PULMONARY EMBOLISM [None]
  - INAPPROPRIATE SCHEDULE OF DRUG ADMINISTRATION [None]
